FAERS Safety Report 17447689 (Version 3)
Quarter: 2020Q3

REPORT INFORMATION
  Report Type: Spontaneous
  Country: JP (occurrence: JP)
  Receive Date: 20200221
  Receipt Date: 20200818
  Transmission Date: 20201102
  Serious: Yes (Other)
  Sender: FDA-Public Use
  Company Number: JP-FERRINGPH-2020FE01100

PATIENT
  Age: 77 Year
  Sex: Male

DRUGS (6)
  1. AMARYL [Concomitant]
     Active Substance: GLIMEPIRIDE
     Dosage: 1 MG, DAILY
     Route: 065
  2. METGLUCO [Concomitant]
     Active Substance: METFORMIN HYDROCHLORIDE
     Dosage: 500 MG, 2 TIMES DAILY
     Route: 065
  3. ALOSENN [SENNOSIDE A+B] [Concomitant]
     Route: 065
  4. MAGLAX [MAGNESIUM OXIDE] [Concomitant]
     Dosage: 330 MG, DAILY
     Route: 065
  5. ACTOS [Concomitant]
     Active Substance: PIOGLITAZONE HYDROCHLORIDE
     Dosage: 15 MG, DAILY
     Route: 065
  6. MINIRINMELT [Suspect]
     Active Substance: DESMOPRESSIN ACETATE
     Indication: NOCTURIA
     Dosage: 25 UG
     Route: 048

REACTIONS (3)
  - Oedema [Recovered/Resolved]
  - Cardiac failure [Recovered/Resolved]
  - Brain natriuretic peptide increased [Recovered/Resolved]

NARRATIVE: CASE EVENT DATE: 20191117
